FAERS Safety Report 24361762 (Version 1)
Quarter: 2024Q3

REPORT INFORMATION
  Report Type: Spontaneous
  Country: CN (occurrence: CN)
  Receive Date: 20240925
  Receipt Date: 20240925
  Transmission Date: 20241016
  Serious: Yes (Other)
  Sender: ROCHE
  Company Number: CN-ROCHE-3099772

PATIENT
  Age: 64 Year
  Sex: Male

DRUGS (5)
  1. ALECTINIB [Suspect]
     Active Substance: ALECTINIB
     Indication: Non-small cell lung cancer
     Route: 065
     Dates: start: 20201029, end: 20210120
  2. BEVACIZUMAB [Suspect]
     Active Substance: BEVACIZUMAB
     Indication: Non-small cell lung cancer
     Dosage: SIX CYCLES.
     Route: 065
     Dates: start: 20191030, end: 20200324
  3. BEVACIZUMAB [Suspect]
     Active Substance: BEVACIZUMAB
     Dosage: FOUR CYCLES AS MAINTENANCE THERAPY
     Route: 065
     Dates: start: 20200424, end: 20200817
  4. PRALSETINIB [Suspect]
     Active Substance: PRALSETINIB
     Indication: Non-small cell lung cancer
     Route: 065
  5. PEMETREXED [Suspect]
     Active Substance: PEMETREXED
     Indication: Non-small cell lung cancer
     Dosage: FOUR CYCLES AS MAINTENANCE THERAPY
     Route: 065
     Dates: start: 20200424, end: 20200817

REACTIONS (5)
  - Disease progression [Recovered/Resolved]
  - Drug ineffective [Unknown]
  - Leukopenia [Unknown]
  - Neutropenia [Unknown]
  - Erythropenia [Unknown]
